FAERS Safety Report 18590385 (Version 1)
Quarter: 2020Q4

REPORT INFORMATION
  Report Type: Spontaneous
  Country: BE (occurrence: BE)
  Receive Date: 20201208
  Receipt Date: 20201208
  Transmission Date: 20210114
  Serious: Yes (Other)
  Sender: FDA-Public Use
  Company Number: BE-TAKEDA-2020TUS055033

PATIENT
  Sex: Female
  Weight: 61 kg

DRUGS (6)
  1. BRIGATINIB [Suspect]
     Active Substance: BRIGATINIB
     Indication: NON-SMALL CELL LUNG CANCER
     Dosage: UNK
     Route: 065
     Dates: start: 20190320, end: 20190421
  2. BRIGATINIB [Suspect]
     Active Substance: BRIGATINIB
     Dosage: 180 MILLIGRAM, QD
     Route: 065
     Dates: start: 20190503, end: 20190513
  3. BRIGATINIB [Suspect]
     Active Substance: BRIGATINIB
     Dosage: 90 MILLIGRAM, QD
     Route: 065
     Dates: start: 20190522
  4. BRIGATINIB [Suspect]
     Active Substance: BRIGATINIB
     Dosage: 180 MILLIGRAM
     Route: 065
     Dates: start: 20200206, end: 20200429
  5. BRIGATINIB [Suspect]
     Active Substance: BRIGATINIB
     Dosage: 120 MILLIGRAM, QD
     Route: 065
     Dates: start: 20190605, end: 20200205
  6. BRIGATINIB [Suspect]
     Active Substance: BRIGATINIB
     Dosage: UNK
     Route: 065
     Dates: end: 20200605

REACTIONS (5)
  - Blood creatine phosphokinase increased [Unknown]
  - Non-small cell lung cancer stage IV [Unknown]
  - Hypertension [Unknown]
  - Toxicity to various agents [Unknown]
  - Amylase increased [Unknown]

NARRATIVE: CASE EVENT DATE: 20190421
